FAERS Safety Report 7168259-8 (Version None)
Quarter: 2010Q4

REPORT INFORMATION
  Report Type: 
  Country: None (occurrence: None)
  Receive Date: 20101216
  Receipt Date: 20101210
  Transmission Date: 20110411
  Serious: Yes (Death)
  Sender: FDA-Public Use
  Company Number: IE-AMGEN-QUU426112

PATIENT

DRUGS (15)
  1. ARANESP [Suspect]
     Indication: RENAL FAILURE CHRONIC
     Dosage: 60 A?G, Q2WK
     Route: 058
     Dates: start: 20100416, end: 20100707
  2. VERAPAMIL [Concomitant]
     Dosage: 120 MG, QD
     Route: 048
  3. VALSARTAN [Concomitant]
     Dosage: 80 MG, UNK
  4. ISOSORBIDE MONONITRATE [Concomitant]
     Dosage: 60 MG, QD
     Route: 048
  5. LANSOPRAZOLE [Concomitant]
     Dosage: UNK UNK, QD
     Route: 048
  6. ATROVENT [Concomitant]
  7. MOVICOL                            /01053601/ [Concomitant]
  8. AMPICILLIN SODIUM/SULBACTAM SODIUM [Concomitant]
     Dosage: 625 MG, BID
     Dates: start: 20100703, end: 20100711
  9. RED BLOOD CELLS [Concomitant]
     Dosage: 2 UNIT, UNK
     Dates: start: 20100705, end: 20100705
  10. COMBIVENT [Concomitant]
     Dosage: UNK UNK, QID
  11. HYDROCORTISONE [Concomitant]
     Dosage: UNK
     Route: 042
     Dates: start: 20100703, end: 20100708
  12. FUROSEMIDE [Concomitant]
     Dosage: UNK
  13. DETRUSITOL                         /01350201/ [Concomitant]
     Dosage: 2 MG, QD
     Route: 048
  14. NICORANDIL [Concomitant]
     Dosage: UNK UNK, BID
     Route: 048
  15. CIPRAMIL                           /00582601/ [Concomitant]

REACTIONS (2)
  - CARDIAC FAILURE [None]
  - RENAL FAILURE [None]
